FAERS Safety Report 21676333 (Version 3)
Quarter: 2023Q1

REPORT INFORMATION
  Report Type: Report from Study
  Country: US (occurrence: US)
  Receive Date: 20221202
  Receipt Date: 20230329
  Transmission Date: 20230417
  Serious: Yes (Other)
  Sender: FDA-Public Use
  Company Number: US-BAYER-2022A163217

PATIENT
  Age: 54 Year
  Sex: Male

DRUGS (11)
  1. NUBEQA [Suspect]
     Active Substance: DAROLUTAMIDE
     Indication: Hormone-refractory prostate cancer
     Dosage: 600 MG, BID
     Route: 048
     Dates: start: 20221115
  2. DEXAMETHASONE [Concomitant]
     Active Substance: DEXAMETHASONE
  3. PREDNISONE [Concomitant]
     Active Substance: PREDNISONE
  4. LUPRON [Concomitant]
     Active Substance: LEUPROLIDE ACETATE
  5. CRESTOR [Concomitant]
     Active Substance: ROSUVASTATIN CALCIUM
  6. PANTOPRAZOLE SODIUM [Concomitant]
     Active Substance: PANTOPRAZOLE SODIUM
  7. DOCETAXEL [Concomitant]
     Active Substance: DOCETAXEL
  8. LOSARTAN POTASSIUM [Concomitant]
     Active Substance: LOSARTAN POTASSIUM
  9. CLARITIN [Concomitant]
     Active Substance: LORATADINE
  10. DIPHENHYDRAMINE HYDROCHLORIDE [Concomitant]
     Active Substance: DIPHENHYDRAMINE HYDROCHLORIDE
  11. MINERALS\VITAMINS [Concomitant]
     Active Substance: MINERALS\VITAMINS

REACTIONS (9)
  - Metastases to lymph nodes [None]
  - Neuropathy peripheral [None]
  - Constipation [None]
  - Haemorrhoids [None]
  - Prostatic pain [None]
  - Pyrexia [None]
  - Night sweats [None]
  - Drug ineffective [None]
  - Cognitive disorder [None]

NARRATIVE: CASE EVENT DATE: 20221116
